FAERS Safety Report 5084013-5 (Version None)
Quarter: 2006Q3

REPORT INFORMATION
  Report Type: 
  Country: None (occurrence: None)
  Receive Date: 20060816
  Receipt Date: 20060731
  Transmission Date: 20061208
  Serious: Yes (Hospitalization, Other)
  Sender: FDA-Public Use
  Company Number: US-2006-015530

PATIENT
  Age: 55 Year
  Sex: Female
  Weight: 47.6 kg

DRUGS (22)
  1. BETASERON [Suspect]
     Indication: SECONDARY PROGRESSIVE MULTIPLE SCLEROSIS
     Dosage: 8 MIU, EVERY 2D, SUBCUTANEOUS
     Route: 058
     Dates: start: 20050310, end: 20060401
  2. DILANTIN [Concomitant]
  3. CORTICOSTEROIDS [Concomitant]
  4. PNEUMOVAX 23 [Concomitant]
  5. INFLUENZA VIRUS VACCINE (INFLUENZA VIRUS VACCINE POLYVALENT) [Concomitant]
  6. LEXAPRO [Concomitant]
  7. PHENYTOIN ORA SUSP (PHENYTOIN) [Concomitant]
  8. CARBOXYMETHYLCELLULOSE SODIUM (CARMELLOSE SODIUM) [Concomitant]
  9. ALPRAZOLAM [Concomitant]
  10. MULTIVTAMINS W/MINERALS (MINERALS NOS, VITAMINS NOS) [Concomitant]
  11. POTASSIUM CHLORIDE COC SYRP, 20% ELIXIR [Concomitant]
  12. LASIX [Concomitant]
  13. FENTANYL [Concomitant]
  14. PROTONIX [Concomitant]
  15. AMBIEN [Concomitant]
  16. TYLENOL EXTRA-STRENGTH [Concomitant]
  17. HYDROCODONE BITARTRATE W/APAP (HYDROCODONE BITARTRATE) [Concomitant]
  18. DIGOXIN [Concomitant]
  19. COLACE (DOCUSATE SODIUM) [Concomitant]
  20. SALINE NASAL SPRAY 0.65% [Concomitant]
  21. COUMADIN [Concomitant]
  22. PULMOCARE (VITAMINS NOS, MINERALS NOS) [Concomitant]

REACTIONS (10)
  - ACUTE RESPIRATORY FAILURE [None]
  - ADRENAL CORTICAL INSUFFICIENCY [None]
  - APHASIA [None]
  - ASTHENIA [None]
  - CULTURE WOUND POSITIVE [None]
  - DECUBITUS ULCER [None]
  - PANCYTOPENIA [None]
  - PROTEUS INFECTION [None]
  - URINARY TRACT INFECTION [None]
  - VENOUS THROMBOSIS [None]
